APPROVED DRUG PRODUCT: DEFERASIROX
Active Ingredient: DEFERASIROX
Strength: 360MG
Dosage Form/Route: TABLET;ORAL
Application: A210945 | Product #002 | TE Code: AB
Applicant: MSN LABORATORIES PRIVATE LTD
Approved: Nov 20, 2019 | RLD: No | RS: No | Type: RX